FAERS Safety Report 10643101 (Version 1)
Quarter: 2014Q4

REPORT INFORMATION
  Report Type: Spontaneous
  Country: US (occurrence: None)
  Receive Date: 20141209
  Receipt Date: 20141209
  Transmission Date: 20150529
  Serious: Yes (Disabling)
  Sender: FDA-Public Use
  Company Number: None

PATIENT
  Age: 52 Year
  Sex: Male
  Weight: 95.71 kg

DRUGS (1)
  1. PULMICORT FLEXHALER [Suspect]
     Active Substance: BUDESONIDE
     Indication: ASTHMA
     Route: 055
     Dates: start: 20141020, end: 20141117

REACTIONS (5)
  - Condition aggravated [None]
  - Affect lability [None]
  - Dyspnoea [None]
  - Anxiety [None]
  - Drug effect decreased [None]

NARRATIVE: CASE EVENT DATE: 20141117
